FAERS Safety Report 15395063 (Version 1)
Quarter: 2018Q3

REPORT INFORMATION
  Report Type: Spontaneous
  Country: US (occurrence: US)
  Receive Date: 20180918
  Receipt Date: 20180918
  Transmission Date: 20181010
  Serious: Yes (Hospitalization)
  Sender: FDA-Public Use
  Company Number: US-APOTEX-2018AP020705

PATIENT
  Age: 87 Year
  Sex: Male

DRUGS (2)
  1. AMIODARONE [Suspect]
     Active Substance: AMIODARONE
     Indication: VENTRICULAR FIBRILLATION
     Dosage: 200 MG, DAILY
     Route: 065
  2. RIVAROXABAN [Interacting]
     Active Substance: RIVAROXABAN
     Indication: ATRIAL FIBRILLATION
     Dosage: 20 MG, DAILY
     Route: 065

REACTIONS (5)
  - Aspartate aminotransferase increased [Unknown]
  - Drug interaction [Unknown]
  - Blood bilirubin increased [Unknown]
  - Anticoagulation drug level above therapeutic [Unknown]
  - Alanine aminotransferase increased [Unknown]
